FAERS Safety Report 8042182-9 (Version None)
Quarter: 2012Q1

REPORT INFORMATION
  Report Type: 
  Country: None (occurrence: None)
  Receive Date: 20120112
  Receipt Date: 20120109
  Transmission Date: 20120608
  Serious: Yes (Death, Other)
  Sender: FDA-Public Use
  Company Number: US-AMGEN-USASP2012001580

PATIENT
  Sex: Male

DRUGS (2)
  1. ENBREL [Suspect]
     Indication: RHEUMATOID ARTHRITIS
     Dosage: UNK
  2. INFLUENZA VACCINE [Concomitant]
     Dosage: UNK

REACTIONS (3)
  - INFLUENZA [None]
  - HEAD INJURY [None]
  - SYNCOPE [None]
